FAERS Safety Report 9081650 (Version 1)
Quarter: 2013Q1

REPORT INFORMATION
  Report Type: Spontaneous
  Country: IT (occurrence: IT)
  Receive Date: 20130130
  Receipt Date: 20130130
  Transmission Date: 20140127
  Serious: Yes (Hospitalization)
  Sender: FDA-Public Use
  Company Number: PHHY2013IT007579

PATIENT
  Sex: Female

DRUGS (2)
  1. ATENOLOL [Suspect]
  2. RAMIPRIL [Suspect]

REACTIONS (4)
  - Sinus tachycardia [Recovered/Resolved]
  - Intentional self-injury [Recovered/Resolved]
  - Electrocardiogram repolarisation abnormality [Recovered/Resolved]
  - Hypotension [Recovered/Resolved]
